FAERS Safety Report 13239957 (Version 1)
Quarter: 2017Q1

REPORT INFORMATION
  Report Type: Spontaneous
  Country: US (occurrence: US)
  Receive Date: 20170216
  Receipt Date: 20170216
  Transmission Date: 20170428
  Serious: No
  Sender: FDA-Public Use
  Company Number: US-PFIZER INC-2017065429

PATIENT
  Age: 46 Year
  Sex: Male
  Weight: 79 kg

DRUGS (2)
  1. FINASTERIDE. [Concomitant]
     Active Substance: FINASTERIDE
     Indication: PROPHYLAXIS
     Dosage: 1 MG, 1X/DAY
     Route: 048
  2. LYRICA [Suspect]
     Active Substance: PREGABALIN
     Indication: NEURALGIA
     Dosage: 100 MG, UNK
     Route: 048
     Dates: start: 2016

REACTIONS (1)
  - Disorientation [Recovering/Resolving]
